FAERS Safety Report 4732320-5 (Version None)
Quarter: 2005Q3

REPORT INFORMATION
  Report Type: 
  Country: None (occurrence: None)
  Receive Date: 20050726
  Receipt Date: 20050107
  Transmission Date: 20060218
  Serious: Yes (Death, Other)
  Sender: FDA-Public Use
  Company Number: 05USA0010

PATIENT
  Sex: Male

DRUGS (10)
  1. AGGRASTAT [Suspect]
     Indication: ACUTE CORONARY SYNDROME
     Dosage: 12.5 MCG BUT BY MISTAKE 12.5 MG WERE ADMINISTERED
  2. ASPIRIN [Concomitant]
  3. CALCIUM CARBONATE (CALCIUM CARBONATE) [Concomitant]
  4. FUROSEMIDE (FUROSEMIDE) [Concomitant]
  5. IBUPROFEN [Concomitant]
  6. INDOMETHACIN [Concomitant]
  7. METOPROLOL TARTRATE [Concomitant]
  8. PREDNISONE [Concomitant]
  9. SIMVASTATIN [Concomitant]
  10. SODIUM CHLORIDE 0.9% [Concomitant]

REACTIONS (11)
  - CATHETER SITE DISCHARGE [None]
  - CONSTIPATION [None]
  - DEATH [None]
  - MEDICATION ERROR [None]
  - OCCULT BLOOD POSITIVE [None]
  - PNEUMONIA [None]
  - PNEUMONIA ASPIRATION [None]
  - PNEUMONITIS [None]
  - RESPIRATORY DISTRESS [None]
  - VESSEL PUNCTURE SITE HAEMORRHAGE [None]
  - VOMITING [None]
